FAERS Safety Report 7691727-7 (Version None)
Quarter: 2011Q3

REPORT INFORMATION
  Report Type: 
  Country: None (occurrence: None)
  Receive Date: 20110818
  Receipt Date: 20110816
  Transmission Date: 20111222
  Serious: Yes (Hospitalization, Other)
  Sender: FDA-Public Use
  Company Number: US-GLAXOSMITHKLINE-A0940944A

PATIENT
  Age: 70 Year
  Sex: Female

DRUGS (20)
  1. IMMUNE GLOBULIN INTRAVENOUS (HUMAN) [Concomitant]
     Indication: IDIOPATHIC THROMBOCYTOPENIC PURPURA
  2. LISINOPRIL [Concomitant]
  3. PROMACTA [Suspect]
     Indication: IDIOPATHIC THROMBOCYTOPENIC PURPURA
     Dates: start: 20110307
  4. BONIVA [Concomitant]
  5. RITUXIMAB [Concomitant]
     Indication: IDIOPATHIC THROMBOCYTOPENIC PURPURA
     Dates: start: 20070501
  6. ISORDIL [Concomitant]
  7. WELLBUTRIN [Concomitant]
  8. LEVOTHYROXINE SODIUM [Concomitant]
  9. LASIX [Concomitant]
  10. LISINOPRIL [Concomitant]
  11. LASIX [Concomitant]
  12. CIPROFLOXACIN [Concomitant]
  13. LABETALOL HCL [Concomitant]
  14. TRAZODONE HCL [Concomitant]
  15. PREDNISONE [Concomitant]
  16. PREMARIN [Concomitant]
  17. PRILOSEC [Concomitant]
  18. IV FLUIDS [Concomitant]
     Dates: start: 20110514
  19. CALCIUM CARBONATE [Concomitant]
  20. NORVASC [Concomitant]

REACTIONS (3)
  - COLITIS ISCHAEMIC [None]
  - HYPERTENSION [None]
  - CARDIAC FAILURE [None]
